FAERS Safety Report 16650603 (Version 4)
Quarter: 2022Q2

REPORT INFORMATION
  Report Type: Report from Study
  Country: AR (occurrence: AR)
  Receive Date: 20190731
  Receipt Date: 20220404
  Transmission Date: 20220721
  Serious: Yes (Hospitalization, Other)
  Sender: FDA-Public Use
  Company Number: PHHY2018AR150751

PATIENT
  Age: 88 Year
  Sex: Female

DRUGS (10)
  1. EXFORGE [Suspect]
     Active Substance: AMLODIPINE BESYLATE\VALSARTAN
     Indication: Hypertension
     Dosage: (AMLODIPINE 5MG, VALSARTAN 160MG)
     Route: 065
  2. EXFORGE [Suspect]
     Active Substance: AMLODIPINE BESYLATE\VALSARTAN
     Dosage: 1.5 DF, QD (AMLODIPINE 5MG, VALSARTAN 160MG) (1 IN MORNING AND 0.5 AT NIGHT)
     Route: 065
  3. EXFORGE [Suspect]
     Active Substance: AMLODIPINE BESYLATE\VALSARTAN
     Dosage: UNK UNK, QD (1.5 OF 5/160MG) (SINCE MORE THAN 10 YEARS AGO)
     Route: 065
  4. EXFORGE [Suspect]
     Active Substance: AMLODIPINE BESYLATE\VALSARTAN
     Dosage: UNK (STARTED 12 YEARS AGO AND STOP 7 YEAR AGO)
     Route: 065
  5. EXFORGE [Suspect]
     Active Substance: AMLODIPINE BESYLATE\VALSARTAN
     Dosage: UNK(5/160MG )
     Route: 065
  6. VILDAGLIPTIN [Suspect]
     Active Substance: VILDAGLIPTIN
     Indication: Diabetes mellitus
     Dosage: 1 DF, BID
     Route: 065
  7. VILDAGLIPTIN [Suspect]
     Active Substance: VILDAGLIPTIN
     Dosage: UNK, QD (2 OF 50 (UNITS NOT REPORTED)
     Route: 065
  8. VILDAGLIPTIN [Suspect]
     Active Substance: VILDAGLIPTIN
     Dosage: UNK 50 (UNITS NOT REPORTED)
     Route: 065
  9. MINERALS\VITAMINS [Concomitant]
     Active Substance: MINERALS\VITAMINS
     Indication: Product used for unknown indication
     Dosage: 2 DF, QD (FOR TWO MONTHS, RESTED ONE MONTH AND THEN RESUME IT)
     Route: 065
  10. CARVEDILOL [Concomitant]
     Active Substance: CARVEDILOL
     Indication: Product used for unknown indication
     Dosage: 12.5 MG, BID (MORNING AND NIGHT
     Route: 065

REACTIONS (11)
  - Meningioma [Unknown]
  - Eye haemorrhage [Unknown]
  - Blindness unilateral [Unknown]
  - Maculopathy [Unknown]
  - Blood pressure increased [Recovering/Resolving]
  - Blood glucose increased [Unknown]
  - Vitreous floaters [Unknown]
  - Ill-defined disorder [Unknown]
  - Wrong technique in product usage process [Not Recovered/Not Resolved]
  - Inappropriate schedule of product administration [Not Recovered/Not Resolved]
  - Drug ineffective [Unknown]

NARRATIVE: CASE EVENT DATE: 20190201
